FAERS Safety Report 10519584 (Version 3)
Quarter: 2014Q4

REPORT INFORMATION
  Report Type: Report from Study
  Country: US (occurrence: US)
  Receive Date: 20141015
  Receipt Date: 20141104
  Transmission Date: 20150528
  Serious: Yes (Hospitalization, Other)
  Sender: FDA-Public Use
  Company Number: US-SA-2014SA133744

PATIENT
  Age: 62 Year
  Sex: Female

DRUGS (1)
  1. AUBAGIO [Suspect]
     Active Substance: TERIFLUNOMIDE
     Indication: MULTIPLE SCLEROSIS
     Route: 048
     Dates: start: 20140922, end: 20140924

REACTIONS (10)
  - Abnormal behaviour [Unknown]
  - Asthenia [Unknown]
  - Hypersomnia [Unknown]
  - Fall [Unknown]
  - Malaise [Unknown]
  - Hypophagia [Unknown]
  - Listless [Unknown]
  - Abasia [Unknown]
  - Unevaluable event [Unknown]
  - Lethargy [Unknown]

NARRATIVE: CASE EVENT DATE: 2014
